FAERS Safety Report 20372952 (Version 1)
Quarter: 2022Q1

REPORT INFORMATION
  Report Type: Report from Study
  Country: DE (occurrence: DE)
  Receive Date: 20220125
  Receipt Date: 20220125
  Transmission Date: 20220424
  Serious: Yes (Other)
  Sender: FDA-Public Use
  Company Number: DE-TAKEDA-2022TUS004214

PATIENT
  Age: 41 Year
  Sex: Female

DRUGS (8)
  1. TEDUGLUTIDE [Suspect]
     Active Substance: TEDUGLUTIDE
     Indication: Short-bowel syndrome
     Dosage: 5 MILLIGRAM, QD
     Route: 065
     Dates: start: 20150410
  2. TEDUGLUTIDE [Suspect]
     Active Substance: TEDUGLUTIDE
     Indication: Short-bowel syndrome
     Dosage: 5 MILLIGRAM, QD
     Route: 065
     Dates: start: 20150410
  3. TEDUGLUTIDE [Suspect]
     Active Substance: TEDUGLUTIDE
     Indication: Short-bowel syndrome
     Dosage: 5 MILLIGRAM, QD
     Route: 065
     Dates: start: 20150410
  4. TEDUGLUTIDE [Suspect]
     Active Substance: TEDUGLUTIDE
     Indication: Short-bowel syndrome
     Dosage: 5 MILLIGRAM, QD
     Route: 065
     Dates: start: 20150410
  5. IMDEVIMAB [Concomitant]
     Active Substance: IMDEVIMAB
     Indication: COVID-19
     Dosage: 999 UNK
     Route: 065
     Dates: start: 20211210, end: 202112
  6. RIFAXIMAX [Concomitant]
     Indication: Diarrhoea
     Dosage: 400 MILLIGRAM, BID
     Route: 048
     Dates: start: 201902
  7. OPIUM TINCTURE [Concomitant]
     Active Substance: MORPHINE
     Indication: Colitis
     Dosage: 100 UNK
     Route: 048
     Dates: start: 201511, end: 201701
  8. OPIUM TINCTURE [Concomitant]
     Active Substance: MORPHINE
     Dosage: 200 MILLIGRAM, Q6HR
     Route: 048
     Dates: start: 201701

REACTIONS (1)
  - Cachexia [Not Recovered/Not Resolved]

NARRATIVE: CASE EVENT DATE: 20210104
